FAERS Safety Report 22096406 (Version 6)
Quarter: 2024Q1

REPORT INFORMATION
  Report Type: Spontaneous
  Country: US (occurrence: US)
  Receive Date: 20230315
  Receipt Date: 20240311
  Transmission Date: 20240409
  Serious: Yes (Hospitalization, Other)
  Sender: FDA-Public Use
  Company Number: US-GSK-US2023036567

PATIENT

DRUGS (1)
  1. NUCALA [Suspect]
     Active Substance: MEPOLIZUMAB
     Indication: Eosinophilic granulomatosis with polyangiitis
     Dosage: 100 MG

REACTIONS (6)
  - Dyspnoea [Not Recovered/Not Resolved]
  - Influenza [Unknown]
  - Pulmonary fibrosis [Unknown]
  - Illness [Unknown]
  - Red blood cell count increased [Unknown]
  - Product dose omission issue [Unknown]

NARRATIVE: CASE EVENT DATE: 20231201
